FAERS Safety Report 4704537-7 (Version None)
Quarter: 2005Q2

REPORT INFORMATION
  Report Type: 
  Country: None (occurrence: None)
  Receive Date: 20050629
  Receipt Date: 20050617
  Transmission Date: 20051028
  Serious: Yes (Other)
  Sender: FDA-Public Use
  Company Number: CH-2005-006542

PATIENT
  Age: 42 Year
  Sex: Female
  Weight: 42 kg

DRUGS (1)
  1. MIRENA [Suspect]
     Indication: MENORRHAGIA
     Dosage: 20 UG/DAY, CONT, INTRA-UTERINE
     Route: 015
     Dates: start: 20050201, end: 20050401

REACTIONS (8)
  - BREAST DISCOMFORT [None]
  - BURNING SENSATION [None]
  - DEPRESSION [None]
  - HYPERHIDROSIS [None]
  - MALAISE [None]
  - PANIC ATTACK [None]
  - SLEEP DISORDER [None]
  - WEIGHT DECREASED [None]
